FAERS Safety Report 6461968-5 (Version None)
Quarter: 2009Q4

REPORT INFORMATION
  Report Type: 
  Country: None (occurrence: None)
  Receive Date: 20091130
  Receipt Date: 20091108
  Transmission Date: 20100525
  Serious: Yes (Other)
  Sender: FDA-Public Use
  Company Number: JP-ROCHE-668659

PATIENT
  Age: 3 Year
  Sex: Male
  Weight: 12 kg

DRUGS (4)
  1. TAMIFLU [Suspect]
     Indication: INFLUENZA
     Dosage: DRUG REPORTED AS:TAMIFLU DRY SYRUP 3%
     Route: 048
     Dates: start: 20091107
  2. ZYRTEC [Concomitant]
     Route: 048
  3. MUCODYNE [Concomitant]
     Dosage: DRUG REPORTED AS:MUCODYNE DS
     Route: 048
  4. HOKUNALIN [Concomitant]
     Dosage: DRUG REPORTED AS:HOKUNALIN:TAPE, FORM:TAPE
     Route: 062

REACTIONS (4)
  - AGITATION [None]
  - CONVULSION [None]
  - TREMOR [None]
  - VOMITING [None]
